FAERS Safety Report 6573817-5 (Version None)
Quarter: 2010Q1

REPORT INFORMATION
  Report Type: 
  Country: None (occurrence: None)
  Receive Date: 20100208
  Receipt Date: 20100202
  Transmission Date: 20100710
  Serious: Yes (Hospitalization, Other)
  Sender: FDA-Public Use
  Company Number: GB-MERCK-1001GBR00105

PATIENT
  Age: 74 Year
  Sex: Male
  Weight: 60 kg

DRUGS (4)
  1. CANCIDAS [Suspect]
     Indication: BRONCHOPULMONARY ASPERGILLOSIS ALLERGIC
     Route: 042
     Dates: start: 20091217, end: 20091217
  2. CEFTAZIDIME [Concomitant]
     Route: 065
  3. PREDNISOLONE [Concomitant]
     Route: 065
  4. ALBUTEROL [Concomitant]
     Route: 065

REACTIONS (5)
  - CHEST PAIN [None]
  - DYSPNOEA [None]
  - HYPOXIA [None]
  - MYOCARDIAL INFARCTION [None]
  - TACHYCARDIA [None]
